FAERS Safety Report 25449463 (Version 1)
Quarter: 2025Q2

REPORT INFORMATION
  Report Type: Spontaneous
  Country: US (occurrence: US)
  Receive Date: 20250618
  Receipt Date: 20250618
  Transmission Date: 20250716
  Serious: Yes (Other)
  Sender: COOPERSURGICAL
  Company Number: US-COOPERSURGICAL, INC.-2025CPS004913

PATIENT
  Age: 54 Year
  Sex: Female
  Weight: 47.619 kg

DRUGS (3)
  1. PARAGARD T 380A [Suspect]
     Active Substance: COPPER
     Route: 015
     Dates: start: 20130307
  2. ESTROGEN NOS [Concomitant]
     Active Substance: ESTROGENS
     Dates: start: 201001
  3. PROGESTERONE [Concomitant]
     Active Substance: PROGESTERONE
     Dates: start: 201001

REACTIONS (8)
  - Uterine polyp [Unknown]
  - Device breakage [Not Recovered/Not Resolved]
  - Foreign body in reproductive tract [Not Recovered/Not Resolved]
  - Complication of device removal [Not Recovered/Not Resolved]
  - Embedded device [Not Recovered/Not Resolved]
  - Sexual dysfunction [Recovered/Resolved]
  - Emotional disorder [Unknown]
  - Pain [Recovered/Resolved]

NARRATIVE: CASE EVENT DATE: 20230110
